FAERS Safety Report 13687543 (Version 1)
Quarter: 2017Q2

REPORT INFORMATION
  Report Type: Spontaneous
  Country: GB (occurrence: GB)
  Receive Date: 20170624
  Receipt Date: 20170624
  Transmission Date: 20170830
  Serious: Yes (Life-Threatening, Hospitalization)
  Sender: FDA-Public Use
  Company Number: GB-TORRENT-00015365

PATIENT
  Age: 37 Year
  Sex: Male
  Weight: 90 kg

DRUGS (1)
  1. RISPERIDONE. [Suspect]
     Active Substance: RISPERIDONE

REACTIONS (2)
  - Hyponatraemic seizure [Recovered/Resolved]
  - Cerebral disorder [Unknown]

NARRATIVE: CASE EVENT DATE: 20170514
